FAERS Safety Report 25873192 (Version 1)
Quarter: 2025Q4

REPORT INFORMATION
  Report Type: Spontaneous
  Country: EU (occurrence: EU)
  Receive Date: 20251002
  Receipt Date: 20251002
  Transmission Date: 20260117
  Serious: Yes (Other)
  Sender: AUROBINDO
  Company Number: EU-MLMSERVICE-20210108-2657576-1

PATIENT
  Age: 28 Year
  Sex: Female

DRUGS (33)
  1. PREDNISONE [Suspect]
     Active Substance: PREDNISONE
     Indication: Prophylaxis against graft versus host disease
     Dosage: 50 MILLIGRAM, ONCE A DAY
     Route: 048
  2. PREDNISONE [Suspect]
     Active Substance: PREDNISONE
     Indication: Chronic graft versus host disease in skin
     Dosage: 25 MILLIGRAM, ONCE A DAY
     Route: 065
  3. PREDNISONE [Suspect]
     Active Substance: PREDNISONE
     Indication: Acute biphenotypic leukaemia
  4. IMATINIB [Suspect]
     Active Substance: IMATINIB
     Indication: Obliterative bronchiolitis
     Dosage: UNK
     Route: 065
  5. IMATINIB [Suspect]
     Active Substance: IMATINIB
     Indication: Graft versus host disease
  6. IMATINIB [Suspect]
     Active Substance: IMATINIB
     Indication: Systemic scleroderma
  7. IMATINIB [Suspect]
     Active Substance: IMATINIB
     Indication: Dry eye
  8. IMATINIB [Suspect]
     Active Substance: IMATINIB
     Indication: Chronic graft versus host disease in skin
  9. IMATINIB [Suspect]
     Active Substance: IMATINIB
     Indication: Acute biphenotypic leukaemia
  10. RITUXIMAB [Suspect]
     Active Substance: RITUXIMAB
     Indication: Dry eye
     Dosage: UNK
     Route: 065
  11. RITUXIMAB [Suspect]
     Active Substance: RITUXIMAB
     Indication: Systemic scleroderma
  12. RITUXIMAB [Suspect]
     Active Substance: RITUXIMAB
     Indication: Obliterative bronchiolitis
  13. RITUXIMAB [Suspect]
     Active Substance: RITUXIMAB
     Indication: Graft versus host disease
  14. RITUXIMAB [Suspect]
     Active Substance: RITUXIMAB
     Indication: Acute biphenotypic leukaemia
  15. RITUXIMAB [Suspect]
     Active Substance: RITUXIMAB
     Indication: Chronic graft versus host disease in skin
  16. ENVARSUS XR [Suspect]
     Active Substance: TACROLIMUS
     Indication: Systemic scleroderma
     Dosage: UNK
     Route: 065
  17. ENVARSUS XR [Suspect]
     Active Substance: TACROLIMUS
     Indication: Obliterative bronchiolitis
  18. ENVARSUS XR [Suspect]
     Active Substance: TACROLIMUS
     Indication: Graft versus host disease
  19. ENVARSUS XR [Suspect]
     Active Substance: TACROLIMUS
     Indication: Dry eye
  20. ENVARSUS XR [Suspect]
     Active Substance: TACROLIMUS
     Indication: Acute biphenotypic leukaemia
  21. ENVARSUS XR [Suspect]
     Active Substance: TACROLIMUS
     Indication: Chronic graft versus host disease in skin
  22. MYCOPHENOLATE MOFETIL [Suspect]
     Active Substance: MYCOPHENOLATE MOFETIL
     Indication: Graft versus host disease
     Dosage: UNK
     Route: 065
  23. MYCOPHENOLATE MOFETIL [Suspect]
     Active Substance: MYCOPHENOLATE MOFETIL
     Indication: Dry eye
  24. MYCOPHENOLATE MOFETIL [Suspect]
     Active Substance: MYCOPHENOLATE MOFETIL
     Indication: Systemic scleroderma
  25. MYCOPHENOLATE MOFETIL [Suspect]
     Active Substance: MYCOPHENOLATE MOFETIL
     Indication: Obliterative bronchiolitis
  26. MYCOPHENOLATE MOFETIL [Suspect]
     Active Substance: MYCOPHENOLATE MOFETIL
     Indication: Chronic graft versus host disease in skin
  27. MYCOPHENOLATE MOFETIL [Suspect]
     Active Substance: MYCOPHENOLATE MOFETIL
     Indication: Acute biphenotypic leukaemia
  28. METHOTREXATE [Concomitant]
     Active Substance: METHOTREXATE
     Indication: Obliterative bronchiolitis
     Dosage: UNK
     Route: 065
  29. METHOTREXATE [Concomitant]
     Active Substance: METHOTREXATE
     Indication: Graft versus host disease
  30. METHOTREXATE [Concomitant]
     Active Substance: METHOTREXATE
     Indication: Systemic scleroderma
  31. METHOTREXATE [Concomitant]
     Active Substance: METHOTREXATE
     Indication: Dry eye
  32. METHOTREXATE [Concomitant]
     Active Substance: METHOTREXATE
     Indication: Chronic graft versus host disease in skin
  33. METHOTREXATE [Concomitant]
     Active Substance: METHOTREXATE
     Indication: Acute biphenotypic leukaemia

REACTIONS (10)
  - Osteoporotic fracture [Unknown]
  - Steroid diabetes [Unknown]
  - Osteonecrosis [Unknown]
  - Toxicity to various agents [Unknown]
  - Chronic graft versus host disease in skin [Recovered/Resolved]
  - Dry eye [Recovered/Resolved]
  - Obliterative bronchiolitis [Recovered/Resolved]
  - Chronic graft versus host disease [Recovered/Resolved]
  - Therapy non-responder [Unknown]
  - Off label use [Unknown]
